FAERS Safety Report 7675239-2 (Version None)
Quarter: 2011Q3

REPORT INFORMATION
  Report Type: 
  Country: None (occurrence: None)
  Receive Date: 20110810
  Receipt Date: 20110804
  Transmission Date: 20111222
  Serious: Yes (Hospitalization, Other)
  Sender: FDA-Public Use
  Company Number: IN-ABBOTT-11P-078-0844220-00

PATIENT
  Age: 21 Year
  Sex: Male

DRUGS (1)
  1. VALPROATE SODIUM [Suspect]
     Indication: PRODUCT USED FOR UNKNOWN INDICATION

REACTIONS (12)
  - HEADACHE [None]
  - BLOOD GLUCOSE DECREASED [None]
  - HYPERNATRAEMIA [None]
  - COMA [None]
  - HYPERAMMONAEMIA [None]
  - OSMOLAR GAP ABNORMAL [None]
  - RESPIRATORY ACIDOSIS [None]
  - METABOLIC ACIDOSIS [None]
  - AGITATION [None]
  - ANION GAP INCREASED [None]
  - HAEMODIALYSIS [None]
  - OVERDOSE [None]
